FAERS Safety Report 11852114 (Version 2)
Quarter: 2015Q4

REPORT INFORMATION
  Report Type: Spontaneous
  Country: JP (occurrence: JP)
  Receive Date: 20151218
  Receipt Date: 20151230
  Transmission Date: 20160305
  Serious: Yes (Disabling, Other)
  Sender: FDA-Public Use
  Company Number: JP-BAYER-2015-476007

PATIENT
  Age: 86 Year
  Sex: Female
  Weight: 37.9 kg

DRUGS (8)
  1. NEXIUM [Concomitant]
     Active Substance: ESOMEPRAZOLE MAGNESIUM
     Indication: PROPHYLAXIS AGAINST GASTROINTESTINAL ULCER
     Dosage: DAILY DOSE 20 MG
     Route: 048
     Dates: start: 20150106
  2. BLOPRESS [Concomitant]
     Active Substance: CANDESARTAN CILEXETIL
     Indication: HYPERTENSION
     Dosage: DAILY DOSE 4 MG
     Route: 048
  3. ROZEREM [Concomitant]
     Active Substance: RAMELTEON
     Indication: INSOMNIA
     Dosage: DAILY DOSE 8 MG
     Route: 048
     Dates: start: 20150817
  4. MAGMITT [Concomitant]
     Active Substance: MAGNESIUM OXIDE
     Indication: DYSBACTERIOSIS
     Dosage: DAILY DOSE 500 MG
     Route: 048
     Dates: start: 20150109
  5. SENNOSIDE [Concomitant]
     Active Substance: SENNOSIDES
     Indication: DYSBACTERIOSIS
     Dosage: DAILY DOSE 24 MG
     Route: 048
     Dates: start: 20150308
  6. MIRTAZAPINE. [Concomitant]
     Active Substance: MIRTAZAPINE
     Indication: INSOMNIA
     Dosage: DAILY DOSE 7.5 MG
     Route: 048
     Dates: start: 20150925
  7. BAYASPIRIN [Suspect]
     Active Substance: ASPIRIN
     Indication: BRAIN STEM INFARCTION
     Dosage: DAILY DOSE 100 MG
     Route: 048
     Dates: end: 20151120
  8. LUNESTA [Concomitant]
     Active Substance: ESZOPICLONE
     Indication: INSOMNIA
     Dosage: DAILY DOSE 4 MG
     Route: 048
     Dates: start: 20150817

REACTIONS (3)
  - Haemorrhagic anaemia [Recovering/Resolving]
  - Rectal cancer [Recovered/Resolved]
  - Tumour haemorrhage [None]

NARRATIVE: CASE EVENT DATE: 20151120
